FAERS Safety Report 7027181-8 (Version None)
Quarter: 2010Q4

REPORT INFORMATION
  Report Type: 
  Country: None (occurrence: None)
  Receive Date: 20101001
  Receipt Date: 20101001
  Transmission Date: 20110411
  Serious: Yes (Other)
  Sender: FDA-Public Use
  Company Number: None

PATIENT
  Age: 33 Year
  Sex: Female
  Weight: 76.6579 kg

DRUGS (1)
  1. BUPROPION HCL [Suspect]
     Indication: DEPRESSION
     Dosage: 150MG TWICE DAILY PO
     Route: 048
     Dates: start: 20100911, end: 20100926

REACTIONS (6)
  - AGITATION [None]
  - EYE SWELLING [None]
  - IRRITABILITY [None]
  - OESOPHAGEAL SPASM [None]
  - PRURITUS [None]
  - URTICARIA [None]
